FAERS Safety Report 9732547 (Version 1)
Quarter: 2013Q4

REPORT INFORMATION
  Report Type: Spontaneous
  Country: US (occurrence: US)
  Receive Date: 20131205
  Receipt Date: 20131205
  Transmission Date: 20140711
  Serious: No
  Sender: FDA-Public Use
  Company Number: US-PFIZER INC-2013345039

PATIENT
  Age: 33 Year
  Sex: Female
  Weight: 159.2 kg

DRUGS (4)
  1. XELJANZ [Suspect]
     Indication: RHEUMATOID ARTHRITIS
     Dosage: 5 MG, 2X/DAY
     Route: 048
     Dates: start: 201310
  2. ORTHO TRI-CYCLEN [Interacting]
     Indication: CONTRACEPTION
     Dosage: UNK, 1X/DAY
     Route: 048
     Dates: start: 201304, end: 20131127
  3. CYMBALTA [Concomitant]
     Indication: FIBROMYALGIA
     Dosage: UNK, 1X/DAY
  4. METHOTREXATE [Concomitant]
     Dosage: FOUR PILLS IN A WEEK

REACTIONS (6)
  - Lipids increased [Unknown]
  - Blood cholesterol increased [Unknown]
  - Blood triglycerides abnormal [Unknown]
  - Weight increased [Unknown]
  - Menstrual disorder [Recovered/Resolved]
  - Drug interaction [Unknown]
